FAERS Safety Report 16721868 (Version 2)
Quarter: 2019Q4

REPORT INFORMATION
  Report Type: Report from Study
  Country: US (occurrence: US)
  Receive Date: 20190820
  Receipt Date: 20191007
  Transmission Date: 20200122
  Serious: Yes (Death, Hospitalization)
  Sender: FDA-Public Use
  Company Number: US-BAYER-2019-128496

PATIENT
  Age: 75 Year
  Sex: Male

DRUGS (2)
  1. XOFIGO [Suspect]
     Active Substance: RADIUM RA-223 DICHLORIDE
     Indication: HORMONE-REFRACTORY PROSTATE CANCER
     Dosage: 98.90 ?CI, Q4WK (28 DAYS)
     Dates: start: 20190612, end: 20190612
  2. XOFIGO [Suspect]
     Active Substance: RADIUM RA-223 DICHLORIDE
     Indication: HORMONE-REFRACTORY PROSTATE CANCER
     Dosage: UNK
     Route: 042

REACTIONS (6)
  - Death [Fatal]
  - Pneumonia [None]
  - Encephalopathy [None]
  - Metabolic disorder [None]
  - Confusional state [None]
  - Hyponatraemia [None]

NARRATIVE: CASE EVENT DATE: 201906
